FAERS Safety Report 8588109 (Version 2)
Quarter: 2012Q4

REPORT INFORMATION
  Report Type: 
  Country: US (occurrence: US)
  Receive Date: 20120531
  Receipt Date: 20121024
  Transmission Date: 20130627
  Serious: Yes (Hospitalization)
  Sender: FDA-Public Use
  Company Number: US-BAYER-2012-052700

PATIENT
  Age: 25 Year
  Sex: Female
  Weight: 90.7 kg

DRUGS (3)
  1. YAZ [Suspect]
     Indication: PREMENSTRUAL SYNDROME
     Dosage: UNK
  2. LEVSIN [Concomitant]
     Dosage: 0.125 mg, UNK
     Route: 060
     Dates: start: 20080617
  3. PREVACID [Concomitant]
     Dosage: 30 mg, UNK
     Route: 048
     Dates: start: 20080617

REACTIONS (9)
  - Cholelithiasis [None]
  - Cholecystitis chronic [None]
  - Pain [None]
  - Injury [None]
  - General physical health deterioration [None]
  - Anxiety [None]
  - Emotional distress [None]
  - Anhedonia [None]
  - Abdominal pain [None]
